FAERS Safety Report 6229937-8 (Version None)
Quarter: 2009Q2

REPORT INFORMATION
  Report Type: 
  Country: None (occurrence: None)
  Receive Date: 20090615
  Receipt Date: 20090605
  Transmission Date: 20091009
  Serious: Yes (Other)
  Sender: FDA-Public Use
  Company Number: US-ELI_LILLY_AND_COMPANY-US200906001471

PATIENT
  Sex: Male

DRUGS (11)
  1. HUMALOG MIX 75/25 [Suspect]
     Dosage: 10 U, EACH MORNING
  2. HUMALOG MIX 75/25 [Suspect]
     Dosage: 10 U, EACH EVENING
  3. COZAAR [Concomitant]
  4. FUROSEMIDE [Concomitant]
  5. AVODART [Concomitant]
  6. ASPIRIN [Concomitant]
  7. MULTI-VITAMIN [Concomitant]
  8. NORVASC [Concomitant]
  9. ZOCOR [Concomitant]
  10. TUMS [Concomitant]
  11. LABETALOL HCL [Concomitant]

REACTIONS (1)
  - RENAL FAILURE [None]
